FAERS Safety Report 10233948 (Version 1)
Quarter: 2014Q1

REPORT INFORMATION
  Report Type: Spontaneous
  Country: US (occurrence: None)
  Receive Date: 20140306
  Receipt Date: 20140306
  Transmission Date: 20141002
  Serious: Yes (Hospitalization, Other)
  Sender: FDA-Public Use
  Company Number: 163-21880-13113471

PATIENT
  Age: 59 Year
  Sex: Male

DRUGS (13)
  1. REVLIMID [Suspect]
     Indication: PLASMA CELL MYELOMA
     Dosage: 25 MG, 14 IN 21 D, PO
     Route: 048
     Dates: start: 20130830, end: 20130926
  2. CALTRATE (CALCIUM CARBONATE) (UNKNOWN) [Concomitant]
  3. GABAPENTIN (GABAPENTIN) (UNKNOWN) (GABAPENTIN) [Concomitant]
  4. CELEBREX (CELECOXIB) (UNKNOWN) [Concomitant]
  5. MORPHINE (MORPHINE) (UNKNOWN) (MORPHINE) [Concomitant]
  6. CLARITIN (LORATADINE) (UNKNOWN) [Concomitant]
  7. NEXIUM (ESOMEPRAZOLE) (UNKNOWN) [Concomitant]
  8. COMPAZINE (PROCHLORPERAZINE EDISYLATE) (UNKNOWN) [Concomitant]
  9. DEXAMETHASONE (DEXAMETHASONE) (UNKNOWN) [Concomitant]
  10. CYMBALTA [Concomitant]
  11. FLOMAX (UNKNOWN) [Concomitant]
  12. RITALIN (METHYLPHENIDATE HYDROCHLORIDE) (UNKNOWN) [Concomitant]
  13. ZOFRAN (ONDANSETRON HYDROCHLORIDE) (UNKNOWN) [Concomitant]

REACTIONS (2)
  - Femur fracture [None]
  - Fall [None]
